FAERS Safety Report 11528710 (Version 1)
Quarter: 2015Q3

REPORT INFORMATION
  Report Type: Spontaneous
  Country: US (occurrence: US)
  Receive Date: 20150921
  Receipt Date: 20150921
  Transmission Date: 20151125
  Serious: No
  Sender: FDA-Public Use
  Company Number: US-TEVA-520564USA

PATIENT
  Sex: Male
  Weight: 106.69 kg

DRUGS (6)
  1. PROVIGIL [Suspect]
     Active Substance: MODAFINIL
     Indication: SLEEP APNOEA SYNDROME
     Dosage: HALF TABLET
     Dates: start: 2004
  2. PROVIGIL [Suspect]
     Active Substance: MODAFINIL
     Indication: CIRCADIAN RHYTHM SLEEP DISORDER
  3. TAMSULOSIN [Concomitant]
     Active Substance: TAMSULOSIN
     Indication: UROGENITAL DISORDER
  4. MODAFINIL. [Suspect]
     Active Substance: MODAFINIL
     Indication: CIRCADIAN RHYTHM SLEEP DISORDER
  5. MODAFINIL. [Suspect]
     Active Substance: MODAFINIL
     Indication: SLEEP APNOEA SYNDROME
  6. FINASTERIDE. [Concomitant]
     Active Substance: FINASTERIDE
     Indication: UROGENITAL DISORDER

REACTIONS (8)
  - White blood cell count increased [Recovered/Resolved]
  - Biopsy bone marrow abnormal [Recovered/Resolved]
  - Respiratory disorder [Recovered/Resolved]
  - White blood cell count decreased [Not Recovered/Not Resolved]
  - Hypervigilance [Recovered/Resolved]
  - Platelet count decreased [Recovered/Resolved]
  - Off label use [Unknown]
  - Drug dose omission [Unknown]
